FAERS Safety Report 8174073-7 (Version None)
Quarter: 2012Q1

REPORT INFORMATION
  Report Type: 
  Country: None (occurrence: None)
  Receive Date: 20120227
  Receipt Date: 20120221
  Transmission Date: 20120608
  Serious: Yes (Disabling, Other)
  Sender: FDA-Public Use
  Company Number: 2012TP000013

PATIENT
  Sex: Female

DRUGS (8)
  1. ANTIDEPRESSANTS [Concomitant]
  2. LIDODERM [Suspect]
     Indication: ROAD TRAFFIC ACCIDENT
     Dosage: 3 PATCH;1X;TOP
     Route: 061
     Dates: start: 19990101
  3. LIDODERM [Suspect]
     Indication: OVARIAN CANCER
     Dosage: 3 PATCH;1X;TOP
     Route: 061
     Dates: start: 19990101
  4. LIDODERM [Suspect]
     Indication: NECK INJURY
     Dosage: 3 PATCH;1X;TOP
     Route: 061
     Dates: start: 19990101
  5. ANTIMIGRAINE [Concomitant]
  6. FLECTOR [Concomitant]
  7. CHOLESTEROL- AND TRIGLYCERIDE REDUCERS [Concomitant]
  8. ANTIHYPERTENSIVES [Concomitant]

REACTIONS (3)
  - CERVICAL VERTEBRAL FRACTURE [None]
  - ROAD TRAFFIC ACCIDENT [None]
  - OVARIAN CANCER STAGE III [None]
